FAERS Safety Report 9983490 (Version 1)
Quarter: 2014Q1

REPORT INFORMATION
  Report Type: Spontaneous
  Country: GB (occurrence: GB)
  Receive Date: 20140307
  Receipt Date: 20140307
  Transmission Date: 20141002
  Serious: Yes (Other)
  Sender: FDA-Public Use
  Company Number: GB-BAYER-2014-032400

PATIENT
  Age: 68 Year
  Sex: Female

DRUGS (8)
  1. ACETYLSALICYLIC ACID (} 100 MG) [Suspect]
  2. PROTHIADEN [Suspect]
     Dosage: UNK
  3. FUROSEMIDE [Concomitant]
  4. GLICLAZIDE [Concomitant]
  5. LEVOTHYROXINE [Concomitant]
  6. METFORMIN [Concomitant]
  7. RAMIPRIL [Concomitant]
  8. SIMVASTATIN [Concomitant]

REACTIONS (3)
  - Atrial fibrillation [Unknown]
  - Coronary artery bypass [Unknown]
  - Mitral valve repair [Unknown]
